FAERS Safety Report 5871242-3 (Version None)
Quarter: 2008Q3

REPORT INFORMATION
  Report Type: 
  Country: None (occurrence: None)
  Receive Date: 20080903
  Receipt Date: 20080903
  Transmission Date: 20090109
  Serious: Yes (Other)
  Sender: FDA-Public Use
  Company Number: None

PATIENT
  Age: 62 Year
  Sex: Male
  Weight: 81.6475 kg

DRUGS (2)
  1. MELOXICAM [Suspect]
     Dosage: 15 MG TAB ONCE A DAY PO
     Route: 048
     Dates: start: 20080819, end: 20080828
  2. CYCLOBENZAPRINE [Suspect]
     Dosage: 10 MG TAB THREE TIMES A DAY PO
     Route: 048
     Dates: start: 20080819, end: 20080828

REACTIONS (7)
  - COUGH [None]
  - DRUG INEFFECTIVE [None]
  - DRUG INTERACTION [None]
  - MEDICATION ERROR [None]
  - NASOPHARYNGITIS [None]
  - RESPIRATORY TRACT CONGESTION [None]
  - WHEEZING [None]
